FAERS Safety Report 9036589 (Version 1)
Quarter: 2013Q1

REPORT INFORMATION
  Report Type: Spontaneous
  Country: US (occurrence: None)
  Receive Date: 20130117
  Receipt Date: 20130117
  Transmission Date: 20140127
  Serious: Yes (Other)
  Sender: FDA-Public Use
  Company Number: None

PATIENT
  Age: 41 Year
  Sex: Female

DRUGS (7)
  1. INCIVEK [Suspect]
     Route: 048
     Dates: start: 20121220, end: 20130103
  2. RIBASPHERE [Suspect]
     Dosage: 3 TABLETS TWICE DAILY ORAL
     Route: 048
     Dates: start: 20121220, end: 20130103
  3. TRAZADONE [Concomitant]
  4. PRIMIDONE [Concomitant]
  5. PRILOSEC [Concomitant]
  6. SUBOXONE [Concomitant]
  7. LISINOPRIL [Concomitant]

REACTIONS (1)
  - Vomiting [None]
